FAERS Safety Report 4571850-6 (Version None)
Quarter: 2005Q1

REPORT INFORMATION
  Report Type: 
  Country: None (occurrence: None)
  Receive Date: 20050207
  Receipt Date: 20050125
  Transmission Date: 20050727
  Serious: Yes (Other)
  Sender: FDA-Public Use
  Company Number: US-GLAXOSMITHKLINE-A0542311A

PATIENT
  Age: 73 Year
  Sex: Male

DRUGS (5)
  1. ECOTRIN REGULAR STRENGTH TABLETS [Suspect]
     Indication: CAROTID ARTERY OCCLUSION
     Dosage: 325MG PER DAY
     Route: 048
     Dates: start: 20040601
  2. ECOTRIN REGULAR STRENGTH TABLETS [Suspect]
     Dosage: 325MG PER DAY
     Route: 048
  3. HYTRIN [Concomitant]
     Indication: HYPERTENSION
     Route: 048
  4. NORVASC [Concomitant]
     Indication: HYPERTENSION
     Route: 048
  5. ACCUPRIL [Concomitant]
     Indication: HYPERTENSION
     Route: 048

REACTIONS (4)
  - BLOOD VISCOSITY INCREASED [None]
  - ERECTILE DYSFUNCTION [None]
  - HAEMORRHAGE [None]
  - LACERATION [None]
